FAERS Safety Report 11803157 (Version 1)
Quarter: 2015Q4

REPORT INFORMATION
  Report Type: Report from Study
  Country: DE (occurrence: DE)
  Receive Date: 20151204
  Receipt Date: 20151204
  Transmission Date: 20160305
  Serious: Yes (Hospitalization)
  Sender: FDA-Public Use
  Company Number: DE-BIOGENIDEC-2015BI159859

PATIENT
  Age: 76 Year
  Sex: Female

DRUGS (2)
  1. TECFIDERA [Suspect]
     Active Substance: DIMETHYL FUMARATE
     Indication: MULTIPLE SCLEROSIS
     Route: 048
     Dates: start: 20140627
  2. AZOPT [Concomitant]
     Active Substance: BRINZOLAMIDE
     Dates: start: 2015

REACTIONS (1)
  - Prosthesis implantation [Not Recovered/Not Resolved]

NARRATIVE: CASE EVENT DATE: 20151118
